FAERS Safety Report 18014984 (Version 4)
Quarter: 2020Q4

REPORT INFORMATION
  Report Type: Spontaneous
  Country: CH (occurrence: CH)
  Receive Date: 20200713
  Receipt Date: 20201218
  Transmission Date: 20210113
  Serious: Yes (Other)
  Sender: FDA-Public Use
  Company Number: CH-REGENERON PHARMACEUTICALS, INC.-2020-49171

PATIENT

DRUGS (2)
  1. EYLEA [Suspect]
     Active Substance: AFLIBERCEPT
     Indication: PRODUCT USED FOR UNKNOWN INDICATION
     Dosage: UNK
  2. EYLEA [Suspect]
     Active Substance: AFLIBERCEPT
     Dosage: UNK

REACTIONS (3)
  - Intraocular pressure increased [Recovered/Resolved]
  - Blindness transient [Recovered/Resolved]
  - Device use issue [Unknown]
